FAERS Safety Report 7039380-X (Version None)
Quarter: 2010Q3

REPORT INFORMATION
  Report Type: 
  Country: None (occurrence: None)
  Receive Date: 20100819
  Receipt Date: 20100804
  Transmission Date: 20110219
  Serious: Yes (Hospitalization)
  Sender: FDA-Public Use
  Company Number: GAM-142-10-DE

PATIENT
  Age: 71 Year
  Sex: Male

DRUGS (6)
  1. OCTAGAM [Suspect]
     Indication: MYASTHENIA GRAVIS
     Dosage: 400 MG/KG
     Route: 042
     Dates: start: 20100610, end: 20100610
  2. SIMVASTATIN [Concomitant]
  3. ASPIRIN [Concomitant]
  4. PANTOPRAZOLE SODIUM [Concomitant]
  5. AMLODIPINE [Concomitant]
  6. DELIX (HYDROCHLOROTHIAZIDE AND RAMIPRIL) [Concomitant]

REACTIONS (4)
  - FIBRIN D DIMER INCREASED [None]
  - HYPERVISCOSITY SYNDROME [None]
  - INFARCTION [None]
  - TROPONIN I INCREASED [None]
